FAERS Safety Report 8050742-4 (Version None)
Quarter: 2012Q1

REPORT INFORMATION
  Report Type: 
  Country: None (occurrence: None)
  Receive Date: 20120117
  Receipt Date: 20120117
  Transmission Date: 20120608
  Serious: Yes (Other)
  Sender: FDA-Public Use
  Company Number: None

PATIENT
  Age: 22 Year
  Sex: Female
  Weight: 56.699 kg

DRUGS (2)
  1. OXYCODONE HCL [Suspect]
     Indication: MIGRAINE
     Dosage: 2
     Route: 048
     Dates: start: 20120109, end: 20120116
  2. OXYCODONE HCL [Suspect]
     Indication: INTERVERTEBRAL DISC DISORDER
     Dosage: 2
     Route: 048
     Dates: start: 20120109, end: 20120116

REACTIONS (7)
  - PRODUCT QUALITY ISSUE [None]
  - NERVOUS SYSTEM DISORDER [None]
  - DRY MOUTH [None]
  - DRUG INEFFECTIVE [None]
  - PRODUCT SUBSTITUTION ISSUE [None]
  - URTICARIA [None]
  - PAIN [None]
